FAERS Safety Report 23131317 (Version 1)
Quarter: 2023Q4

REPORT INFORMATION
  Report Type: Spontaneous
  Country: US (occurrence: US)
  Receive Date: 20231031
  Receipt Date: 20231031
  Transmission Date: 20240109
  Serious: No
  Sender: FDA-Public Use
  Company Number: US-BRISTOL-MYERS SQUIBB COMPANY-2023-154210

PATIENT
  Age: 24 Year
  Sex: Female
  Weight: 70.76 kg

DRUGS (2)
  1. SPRYCEL [Suspect]
     Active Substance: DASATINIB
     Indication: Chronic myeloid leukaemia
     Route: 048
     Dates: start: 202201
  2. SPRYCEL [Suspect]
     Active Substance: DASATINIB
     Indication: Crohn^s disease

REACTIONS (3)
  - Abdominal pain [Unknown]
  - Weight decreased [Unknown]
  - Irritable bowel syndrome [Unknown]
